FAERS Safety Report 10224843 (Version 1)
Quarter: 2014Q2

REPORT INFORMATION
  Report Type: Spontaneous
  Country: CA (occurrence: CA)
  Receive Date: 20140609
  Receipt Date: 20140609
  Transmission Date: 20141212
  Serious: Yes (Disabling)
  Sender: FDA-Public Use
  Company Number: CA-GLAXOSMITHKLINE-A1075972A

PATIENT
  Age: 44 Year
  Sex: Male

DRUGS (10)
  1. AVODART [Suspect]
     Indication: PRODUCT USED FOR UNKNOWN INDICATION
     Dosage: 1CAP PER DAY
     Route: 048
  2. ASA [Concomitant]
     Route: 048
  3. ATENOLOL [Concomitant]
     Route: 048
  4. CO ENZYME Q10 [Concomitant]
  5. CORTISONE [Concomitant]
  6. ESTER C [Concomitant]
  7. RAMIPRIL [Concomitant]
     Route: 048
  8. SIMVASTATIN [Concomitant]
     Route: 048
  9. VITAMIN B COMPLEX [Concomitant]
  10. VITAMIN D [Concomitant]

REACTIONS (5)
  - Blister [Not Recovered/Not Resolved]
  - Erythema [Unknown]
  - Skin discolouration [Unknown]
  - Skin fissures [Unknown]
  - Skin haemorrhage [Unknown]
